FAERS Safety Report 7394442-2 (Version None)
Quarter: 2011Q2

REPORT INFORMATION
  Report Type: 
  Country: None (occurrence: None)
  Receive Date: 20110405
  Receipt Date: 20110329
  Transmission Date: 20111010
  Serious: Yes (Other)
  Sender: FDA-Public Use
  Company Number: US-PFIZER INC-2011070632

PATIENT
  Age: 6 Year
  Sex: Female

DRUGS (1)
  1. GEODON [Suspect]

REACTIONS (1)
  - DYSTONIA [None]
